FAERS Safety Report 8392875-9 (Version None)
Quarter: 2012Q2

REPORT INFORMATION
  Report Type: 
  Country: None (occurrence: None)
  Receive Date: 20120529
  Receipt Date: 20110812
  Transmission Date: 20120825
  Serious: No
  Sender: FDA-Public Use
  Company Number: US-MYLANLABS-2011S1017057

PATIENT
  Age: 56 Year
  Sex: Female

DRUGS (3)
  1. TRAZODONE HCL [Concomitant]
     Route: 048
  2. CLONAZEPAM [Concomitant]
     Indication: ANXIETY
     Route: 048
  3. ZOLPIDEM TARTRATE [Suspect]
     Indication: INSOMNIA
     Route: 048
     Dates: start: 20110811

REACTIONS (2)
  - MIDDLE INSOMNIA [None]
  - DRUG EFFECT DECREASED [None]
